FAERS Safety Report 16736241 (Version 2)
Quarter: 2019Q4

REPORT INFORMATION
  Report Type: Spontaneous
  Country: US (occurrence: US)
  Receive Date: 20190823
  Receipt Date: 20191106
  Transmission Date: 20200122
  Serious: No
  Sender: FDA-Public Use
  Company Number: US-SA-2019SA228181

PATIENT
  Age: 33 Year
  Sex: Male

DRUGS (2)
  1. AUBAGIO [Suspect]
     Active Substance: TERIFLUNOMIDE
     Indication: MULTIPLE SCLEROSIS
     Dosage: 14 MG, QD
     Route: 048
     Dates: start: 20190516, end: 201910
  2. AUBAGIO [Suspect]
     Active Substance: TERIFLUNOMIDE
     Indication: TREMOR

REACTIONS (1)
  - Myalgia [Unknown]
